FAERS Safety Report 21722048 (Version 1)
Quarter: 2022Q4

REPORT INFORMATION
  Report Type: Spontaneous
  Country: US (occurrence: None)
  Receive Date: 20221212
  Receipt Date: 20221212
  Transmission Date: 20230112
  Serious: No
  Sender: FDA-Public Use
  Company Number: None

PATIENT
  Age: 66 Year
  Sex: Female

DRUGS (1)
  1. ORENCIA [Suspect]
     Active Substance: ABATACEPT
     Dosage: FREQUENCY : WEEKLY;?
     Route: 058
     Dates: start: 20210208

REACTIONS (3)
  - Therapy interrupted [None]
  - Cellulitis [None]
  - Urinary tract infection [None]

NARRATIVE: CASE EVENT DATE: 20221111
